FAERS Safety Report 6770806-2 (Version None)
Quarter: 2010Q2

REPORT INFORMATION
  Report Type: 
  Country: None (occurrence: None)
  Receive Date: 20100614
  Receipt Date: 20100614
  Transmission Date: 20101027
  Serious: Yes (Hospitalization)
  Sender: FDA-Public Use
  Company Number: None

PATIENT
  Sex: Male
  Weight: 77 kg

DRUGS (9)
  1. DASATINIB [Suspect]
     Indication: PROSTATE CANCER METASTATIC
     Dosage: 100MG DAILY PO
     Route: 048
     Dates: start: 20100505, end: 20100610
  2. CALCIUM PLUS VITAMIN D [Concomitant]
  3. VITAMIN B-12 [Concomitant]
  4. IBUPROFEN [Concomitant]
  5. LUPRON [Concomitant]
  6. MULTI-VITAMIN [Concomitant]
  7. CRESTOR [Concomitant]
  8. ZETIA [Concomitant]
  9. SENOKOT [Concomitant]

REACTIONS (3)
  - CHEST PAIN [None]
  - CHOLELITHIASIS [None]
  - PANCREATITIS [None]
